FAERS Safety Report 21018901 (Version 1)
Quarter: 2022Q2

REPORT INFORMATION
  Report Type: Spontaneous
  Country: US (occurrence: US)
  Receive Date: 20220628
  Receipt Date: 20220628
  Transmission Date: 20220721
  Serious: No
  Sender: FDA-Public Use
  Company Number: US-BRISTOL-MYERS SQUIBB COMPANY-2022-060210

PATIENT
  Age: 56 Year
  Sex: Male

DRUGS (2)
  1. REVLIMID [Suspect]
     Active Substance: LENALIDOMIDE
     Indication: Plasma cell myeloma
     Dosage: 25 MILLIGRAM DAILY
     Route: 048
     Dates: start: 20220506
  2. REVLIMID [Suspect]
     Active Substance: LENALIDOMIDE
     Indication: Hiccups

REACTIONS (2)
  - Constipation [Unknown]
  - Urticaria [Unknown]
